FAERS Safety Report 4567088-9 (Version None)
Quarter: 2005Q1

REPORT INFORMATION
  Report Type: 
  Country: None (occurrence: None)
  Receive Date: 20050201
  Receipt Date: 20050121
  Transmission Date: 20050727
  Serious: Yes (Hospitalization)
  Sender: FDA-Public Use
  Company Number: FR-SANOFI-SYNTHELABO-A02200500181

PATIENT
  Age: 85 Year
  Sex: Male

DRUGS (6)
  1. PLAVIX [Suspect]
     Indication: DRUG USE FOR UNKNOWN INDICATION
     Route: 048
     Dates: end: 20041015
  2. ZOCOR [Concomitant]
     Dosage: UNK
     Route: 048
  3. IMOVANE [Concomitant]
     Dosage: UNK
     Route: 048
  4. ZYPREXA [Suspect]
     Indication: DRUG USE FOR UNKNOWN INDICATION
     Route: 048
     Dates: end: 20041015
  5. ALLOPURINOL [Suspect]
     Indication: DRUG USE FOR UNKNOWN INDICATION
     Route: 048
     Dates: end: 20041015
  6. TEMESTA [Suspect]
     Indication: DRUG USE FOR UNKNOWN INDICATION
     Route: 048
     Dates: end: 20041015

REACTIONS (6)
  - ABNORMAL BEHAVIOUR [None]
  - DISORIENTATION [None]
  - ENCEPHALOPATHY [None]
  - HALLUCINATION, VISUAL [None]
  - HYPERREFLEXIA [None]
  - MYOCLONUS [None]
